FAERS Safety Report 8544506-2 (Version None)
Quarter: 2012Q3

REPORT INFORMATION
  Report Type: 
  Country: None (occurrence: None)
  Receive Date: 20120719
  Receipt Date: 20120719
  Transmission Date: 20120928
  Serious: Yes (Hospitalization)
  Sender: FDA-Public Use
  Company Number: None

PATIENT
  Age: 28 Year
  Sex: Female
  Weight: 46.5 kg

DRUGS (1)
  1. BELIMUMAB 460MG [Suspect]
     Indication: SYSTEMIC LUPUS ERYTHEMATOSUS
     Dosage: 460 MG IN 250 ML NORMAL SALINE MONTHLY IV
     Route: 042
     Dates: start: 20120522, end: 20120615

REACTIONS (9)
  - BLOOD PRESSURE INADEQUATELY CONTROLLED [None]
  - COUGH [None]
  - RASH [None]
  - DYSPNOEA [None]
  - RALES [None]
  - LUNG CONSOLIDATION [None]
  - LUNG INFILTRATION [None]
  - LEUKOCYTOCLASTIC VASCULITIS [None]
  - OEDEMA PERIPHERAL [None]
